FAERS Safety Report 15308220 (Version 3)
Quarter: 2018Q4

REPORT INFORMATION
  Report Type: Report from Study
  Country: CN (occurrence: CN)
  Receive Date: 20180822
  Receipt Date: 20181217
  Transmission Date: 20190204
  Serious: Yes (Hospitalization)
  Sender: FDA-Public Use
  Company Number: CN-ASTRAZENECA-2018SE80827

PATIENT
  Age: 18364 Day
  Sex: Male

DRUGS (33)
  1. DURVALUMAB. [Suspect]
     Active Substance: DURVALUMAB
     Indication: SMALL CELL LUNG CANCER
     Dosage: 1500.0MG ONCE/SINGLE ADMINISTRATION
     Route: 042
     Dates: start: 20180614, end: 20180614
  2. CISPLATIN. [Suspect]
     Active Substance: CISPLATIN
     Indication: SMALL CELL LUNG CANCER
     Dosage: 75.0MG/M2 ONCE/SINGLE ADMINISTRATION
     Route: 065
     Dates: start: 20180822, end: 20180822
  3. DEXAMETHASONE SODIUM PHOSPHATE. [Concomitant]
     Active Substance: DEXAMETHASONE SODIUM PHOSPHATE
     Indication: PROPHYLAXIS
     Route: 042
     Dates: start: 20180614, end: 20180615
  4. MANNITOL. [Concomitant]
     Active Substance: MANNITOL
     Indication: PROPHYLAXIS
     Route: 042
     Dates: start: 20180614, end: 20180615
  5. DURVALUMAB. [Suspect]
     Active Substance: DURVALUMAB
     Indication: SMALL CELL LUNG CANCER
     Dosage: 1500.0MG ONCE/SINGLE ADMINISTRATION
     Route: 042
     Dates: start: 20181012, end: 20181012
  6. ETOPOSIDE. [Suspect]
     Active Substance: ETOPOSIDE
     Indication: SMALL CELL LUNG CANCER
     Dosage: 100.0MG/M2 ONCE/SINGLE ADMINISTRATION
     Route: 065
     Dates: start: 20180731, end: 20180731
  7. ETOPOSIDE. [Suspect]
     Active Substance: ETOPOSIDE
     Indication: SMALL CELL LUNG CANCER
     Dosage: 100.0MG/M2 ONCE/SINGLE ADMINISTRATION
     Route: 065
     Dates: start: 20180802, end: 20180802
  8. CISPLATIN. [Suspect]
     Active Substance: CISPLATIN
     Indication: SMALL CELL LUNG CANCER
     Dosage: 75.0MG/M2 ONCE/SINGLE ADMINISTRATION
     Route: 065
     Dates: start: 20180614, end: 20180614
  9. CISPLATIN. [Suspect]
     Active Substance: CISPLATIN
     Indication: SMALL CELL LUNG CANCER
     Dosage: 75.0MG/M2 ONCE/SINGLE ADMINISTRATION
     Route: 065
     Dates: start: 20180705, end: 20180705
  10. CISPLATIN. [Suspect]
     Active Substance: CISPLATIN
     Indication: SMALL CELL LUNG CANCER
     Dosage: 75.0MG/M2 ONCE/SINGLE ADMINISTRATION
     Route: 065
     Dates: start: 20180801, end: 20180801
  11. ZOLEDRONIC ACID [Concomitant]
     Active Substance: ZOLEDRONIC ACID
     Indication: OSTEOPOROSIS PROPHYLAXIS
     Route: 042
     Dates: start: 20180617, end: 20180617
  12. ETOPOSIDE. [Suspect]
     Active Substance: ETOPOSIDE
     Indication: SMALL CELL LUNG CANCER
     Dosage: 100.0MG/M2 ONCE/SINGLE ADMINISTRATION
     Route: 065
     Dates: start: 20180706, end: 20180706
  13. ETOPOSIDE. [Suspect]
     Active Substance: ETOPOSIDE
     Indication: SMALL CELL LUNG CANCER
     Dosage: 100.0MG/M2 ONCE/SINGLE ADMINISTRATION
     Route: 065
     Dates: start: 20180707, end: 20180707
  14. ETOPOSIDE. [Suspect]
     Active Substance: ETOPOSIDE
     Indication: SMALL CELL LUNG CANCER
     Dosage: 100.0MG/M2 ONCE/SINGLE ADMINISTRATION
     Route: 065
     Dates: start: 20180824, end: 20180824
  15. CISPLATIN. [Suspect]
     Active Substance: CISPLATIN
     Indication: SMALL CELL LUNG CANCER
     Dosage: 75.0MG/M2 ONCE/SINGLE ADMINISTRATION
     Route: 065
     Dates: start: 20180706, end: 20180706
  16. DURVALUMAB. [Suspect]
     Active Substance: DURVALUMAB
     Indication: SMALL CELL LUNG CANCER
     Dosage: 1500.0MG ONCE/SINGLE ADMINISTRATION
     Route: 042
     Dates: start: 20180913, end: 20180913
  17. DURVALUMAB. [Suspect]
     Active Substance: DURVALUMAB
     Indication: SMALL CELL LUNG CANCER
     Dosage: 1500.0MG ONCE/SINGLE ADMINISTRATION
     Route: 042
     Dates: start: 20181207, end: 20181207
  18. CISPLATIN. [Suspect]
     Active Substance: CISPLATIN
     Indication: SMALL CELL LUNG CANCER
     Dosage: 75.0MG/M2 ONCE/SINGLE ADMINISTRATION
     Route: 065
     Dates: start: 20180615, end: 20180615
  19. CISPLATIN. [Suspect]
     Active Substance: CISPLATIN
     Indication: SMALL CELL LUNG CANCER
     Dosage: 75.0MG/M2 ONCE/SINGLE ADMINISTRATION
     Route: 065
     Dates: start: 20180731, end: 20180731
  20. DURVALUMAB. [Suspect]
     Active Substance: DURVALUMAB
     Indication: SMALL CELL LUNG CANCER
     Dosage: 1500.0MG ONCE/SINGLE ADMINISTRATION
     Route: 042
     Dates: start: 20180822, end: 20180822
  21. ETOPOSIDE. [Suspect]
     Active Substance: ETOPOSIDE
     Indication: SMALL CELL LUNG CANCER
     Dosage: 100.0MG/M2 ONCE/SINGLE ADMINISTRATION
     Route: 065
     Dates: start: 20180705, end: 20180706
  22. ETOPOSIDE. [Suspect]
     Active Substance: ETOPOSIDE
     Indication: SMALL CELL LUNG CANCER
     Dosage: 100.0MG/M2 ONCE/SINGLE ADMINISTRATION
     Route: 065
     Dates: start: 20180822, end: 20180822
  23. ETOPOSIDE. [Suspect]
     Active Substance: ETOPOSIDE
     Indication: SMALL CELL LUNG CANCER
     Dosage: 100.0MG/M2 ONCE/SINGLE ADMINISTRATION
     Route: 065
     Dates: start: 20180823, end: 20180823
  24. CISPLATIN. [Suspect]
     Active Substance: CISPLATIN
     Indication: SMALL CELL LUNG CANCER
     Dosage: 75.0MG/M2 ONCE/SINGLE ADMINISTRATION
     Route: 065
     Dates: start: 20180823, end: 20180823
  25. TROPISETRON HYDROCHLORIDE [Concomitant]
     Active Substance: TROPISETRON HYDROCHLORIDE
     Indication: PROPHYLAXIS
     Route: 042
     Dates: start: 20180614, end: 20180615
  26. IBUPROFEN. [Concomitant]
     Active Substance: IBUPROFEN
     Indication: PYREXIA
     Route: 042
     Dates: start: 20180616, end: 20180617
  27. FUROSEMIDE. [Concomitant]
     Active Substance: FUROSEMIDE
     Indication: PROPHYLAXIS
     Route: 042
     Dates: start: 20180614, end: 20180615
  28. DURVALUMAB. [Suspect]
     Active Substance: DURVALUMAB
     Indication: SMALL CELL LUNG CANCER
     Dosage: 1500.0MG ONCE/SINGLE ADMINISTRATION
     Route: 042
     Dates: start: 20181109, end: 20181109
  29. ETOPOSIDE. [Suspect]
     Active Substance: ETOPOSIDE
     Indication: SMALL CELL LUNG CANCER
     Dosage: 100.0MG/M2 ONCE/SINGLE ADMINISTRATION
     Route: 065
     Dates: start: 20180615, end: 20180615
  30. ETOPOSIDE. [Suspect]
     Active Substance: ETOPOSIDE
     Indication: SMALL CELL LUNG CANCER
     Dosage: 100.0MG/M2 ONCE/SINGLE ADMINISTRATION
     Route: 065
     Dates: start: 20180801, end: 20180801
  31. ETOPOSIDE. [Suspect]
     Active Substance: ETOPOSIDE
     Indication: SMALL CELL LUNG CANCER
     Dosage: 100.0MG/M2 ONCE/SINGLE ADMINISTRATION
     Route: 065
     Dates: start: 20180614, end: 20180614
  32. ETOPOSIDE. [Suspect]
     Active Substance: ETOPOSIDE
     Indication: SMALL CELL LUNG CANCER
     Dosage: 100.0MG/M2 ONCE/SINGLE ADMINISTRATION
     Route: 065
     Dates: start: 20180616, end: 20180616
  33. APREPITANT. [Concomitant]
     Active Substance: APREPITANT
     Indication: PROPHYLAXIS
     Route: 048
     Dates: start: 20180614, end: 20180616

REACTIONS (1)
  - Secondary adrenocortical insufficiency [Recovered/Resolved]

NARRATIVE: CASE EVENT DATE: 20180618
